FAERS Safety Report 8443500-X (Version None)
Quarter: 2012Q2

REPORT INFORMATION
  Report Type: 
  Country: None (occurrence: None)
  Receive Date: 20120618
  Receipt Date: 20120607
  Transmission Date: 20120825
  Serious: Yes (Other)
  Sender: FDA-Public Use
  Company Number: HU-JNJFOC-20120604942

PATIENT
  Sex: Female
  Weight: 48 kg

DRUGS (6)
  1. REMICADE [Suspect]
     Indication: CROHN'S DISEASE
     Route: 042
     Dates: start: 20120606, end: 20120606
  2. SORBIFER [Concomitant]
     Indication: ANAEMIA
     Dosage: 1 TAB/DAY
     Route: 065
     Dates: start: 20111201
  3. FOLIC ACID [Concomitant]
     Indication: ANAEMIA
     Dosage: 1 TAB DAY
     Route: 065
     Dates: start: 20111201
  4. IMURAN [Concomitant]
     Indication: CROHN'S DISEASE
     Route: 065
     Dates: start: 20080101
  5. OMEPRAZOLE [Concomitant]
     Indication: CROHN'S DISEASE
     Route: 065
     Dates: start: 20080101
  6. MESALAMINE [Concomitant]
     Indication: CROHN'S DISEASE
     Route: 048
     Dates: start: 20080101

REACTIONS (5)
  - HEADACHE [None]
  - VOMITING [None]
  - FLUSHING [None]
  - TACHYCARDIA [None]
  - DIZZINESS [None]
